FAERS Safety Report 6084714-6 (Version None)
Quarter: 2009Q1

REPORT INFORMATION
  Report Type: 
  Country: None (occurrence: None)
  Receive Date: 20090219
  Receipt Date: 20080717
  Transmission Date: 20090719
  Serious: Yes (Other)
  Sender: FDA-Public Use
  Company Number: US-PFIZER INC-2008060254

PATIENT
  Sex: Female
  Weight: 74.09 kg

DRUGS (4)
  1. XALATAN [Suspect]
     Indication: GLAUCOMA
     Dosage: 1 GTT, 1X/DAY
  2. XALATAN [Suspect]
     Indication: OPEN ANGLE GLAUCOMA
  3. JANUVIA [Concomitant]
  4. PLAVIX [Concomitant]

REACTIONS (3)
  - CATARACT OPERATION [None]
  - CONFUSIONAL STATE [None]
  - VISUAL ACUITY REDUCED [None]
